FAERS Safety Report 6009173-0 (Version None)
Quarter: 2008Q4

REPORT INFORMATION
  Report Type: 
  Country: None (occurrence: None)
  Receive Date: 20081217
  Receipt Date: 20081203
  Transmission Date: 20090506
  Serious: Yes (Other)
  Sender: FDA-Public Use
  Company Number: RU-GENENTECH-272409

PATIENT
  Age: 47 Year
  Sex: Female

DRUGS (5)
  1. MABTHERA [Suspect]
     Indication: SYSTEMIC LUPUS ERYTHEMATOSUS
     Dosage: 2 G, 1/WEEK
     Route: 042
     Dates: start: 20071201
  2. NADROPARIN CALCIUM [Concomitant]
     Indication: DRUG USE FOR UNKNOWN INDICATION
  3. HORMONES NOS [Concomitant]
     Indication: DRUG USE FOR UNKNOWN INDICATION
  4. MEDICATION (UNK INGREDIENT) [Concomitant]
     Indication: DRUG USE FOR UNKNOWN INDICATION
  5. MEDICATION (UNK INGREDIENT) [Concomitant]

REACTIONS (1)
  - BACTERIA URINE [None]
